FAERS Safety Report 19505985 (Version 1)
Quarter: 2021Q3

REPORT INFORMATION
  Report Type: Spontaneous
  Country: US (occurrence: US)
  Receive Date: 20210707
  Receipt Date: 20210707
  Transmission Date: 20211014
  Serious: Yes (Other)
  Sender: FDA-Public Use
  Company Number: None

PATIENT

DRUGS (1)
  1. AIRE?MASTER [Suspect]
     Active Substance: ALCOHOL

REACTIONS (4)
  - Dizziness [None]
  - Product substitution issue [None]
  - Asthenia [None]
  - Nausea [None]
